FAERS Safety Report 5831735-1 (Version None)
Quarter: 2008Q3

REPORT INFORMATION
  Report Type: 
  Country: None (occurrence: None)
  Receive Date: 20080803
  Receipt Date: 20080723
  Transmission Date: 20090109
  Serious: Yes (Disabling)
  Sender: FDA-Public Use
  Company Number: PHHY2008BR15026

PATIENT

DRUGS (6)
  1. SANDIMMUNE [Suspect]
     Indication: PROPHYLAXIS AGAINST GRAFT VERSUS HOST DISEASE
     Dosage: 37 MG, Q12H
     Route: 042
     Dates: start: 20080522, end: 20080620
  2. ONDANSETRON [Concomitant]
  3. ACYCLOVIR [Concomitant]
  4. FLUCONAZOLE [Concomitant]
  5. URSODIOL [Concomitant]
  6. CEFEPIME [Concomitant]

REACTIONS (3)
  - HEADACHE [None]
  - SOMNOLENCE [None]
  - VISION BLURRED [None]
